FAERS Safety Report 9936983 (Version 1)
Quarter: 2014Q1

REPORT INFORMATION
  Report Type: Spontaneous
  Country: US (occurrence: None)
  Receive Date: 20140115
  Receipt Date: 20140115
  Transmission Date: 20141002
  Serious: No
  Sender: FDA-Public Use
  Company Number: 2013US002706

PATIENT
  Age: 66 Year
  Sex: Female
  Weight: 66 kg

DRUGS (7)
  1. ICLUSIG (PONATINIB) TABLET, 45MG [Suspect]
     Indication: CHRONIC MYELOID LEUKAEMIA
     Route: 048
     Dates: start: 20131003, end: 20131004
  2. KCI (KCI) [Concomitant]
  3. SERTRALINE (SERTRALINE) [Concomitant]
  4. CARVEDILOL (CARVEDILOL) [Concomitant]
  5. ASA (ASA) [Concomitant]
  6. NEXIUM I.V. [Concomitant]
  7. PROCHLORPERAZINE (PROCHLORPERAZINE) [Concomitant]

REACTIONS (4)
  - Gastrooesophageal reflux disease [None]
  - Productive cough [None]
  - Pyrexia [None]
  - Asthenia [None]
